FAERS Safety Report 16526066 (Version 1)
Quarter: 2019Q3

REPORT INFORMATION
  Report Type: Spontaneous
  Country: DE (occurrence: DE)
  Receive Date: 20190703
  Receipt Date: 20190703
  Transmission Date: 20191004
  Serious: Yes (Other)
  Sender: FDA-Public Use
  Company Number: DE-ALKEM LABORATORIES LIMITED-DE-ALKEM-2019-05985

PATIENT
  Age: 42 Year
  Sex: Female
  Weight: 80 kg

DRUGS (4)
  1. QUETIAPINE FUMARATE. [Suspect]
     Active Substance: QUETIAPINE FUMARATE
     Indication: ORGANIC BRAIN SYNDROME
     Dosage: 50 MILLIGRAM, QD
     Route: 048
     Dates: start: 20180319, end: 20181212
  2. GINGIUM INTENS 120 [Concomitant]
     Indication: ORGANIC BRAIN SYNDROME
     Dosage: 120 MILLIGRAM, QD
     Route: 048
     Dates: start: 20180319, end: 20180427
  3. LEVETIRACETAM. [Concomitant]
     Active Substance: LEVETIRACETAM
     Indication: EPILEPSY
     Dosage: 1500 [MG/D (2X750 BZW. 3X500 MG/D) ]
     Route: 048
     Dates: start: 20180319, end: 20181212
  4. PIRACETAM [Concomitant]
     Active Substance: PIRACETAM
     Indication: ORGANIC BRAIN SYNDROME
     Dosage: 1200 MILLIGRAM, QD
     Route: 048
     Dates: start: 20180319, end: 20180427

REACTIONS (2)
  - Exposure during pregnancy [Unknown]
  - Gestational diabetes [Unknown]
